FAERS Safety Report 9712397 (Version 1)
Quarter: 2013Q4

REPORT INFORMATION
  Report Type: Spontaneous
  Country: US (occurrence: US)
  Receive Date: 20131126
  Receipt Date: 20131126
  Transmission Date: 20140711
  Serious: No
  Sender: FDA-Public Use
  Company Number: US-BRISTOL-MYERS SQUIBB COMPANY-18868950

PATIENT
  Sex: Male

DRUGS (1)
  1. BYDUREON [Suspect]
     Dosage: INTER ON OCT12,RESTART DATE 30APR13
     Route: 058
     Dates: start: 2012, end: 20130430

REACTIONS (1)
  - Blood glucose increased [Not Recovered/Not Resolved]
